FAERS Safety Report 6131798-2 (Version None)
Quarter: 2009Q1

REPORT INFORMATION
  Report Type: 
  Country: None (occurrence: None)
  Receive Date: 20090325
  Receipt Date: 20090320
  Transmission Date: 20090719
  Serious: Yes (Other)
  Sender: FDA-Public Use
  Company Number: US-JNJFOC-20090305710

PATIENT
  Age: 59 Year
  Sex: Female

DRUGS (5)
  1. ELMIRON [Suspect]
     Indication: CYSTITIS INTERSTITIAL
     Route: 048
  2. NAPROXEN [Concomitant]
     Indication: ARTHRITIS
     Dosage: AS NEEDED
     Route: 048
  3. PREVACID [Concomitant]
     Indication: DYSPEPSIA
     Dosage: AS NEEDED
     Route: 048
  4. LOVAZA [Concomitant]
     Indication: MEDICAL DIET
     Route: 048
  5. FLAXSEED OIL [Concomitant]
     Indication: MEDICAL DIET
     Route: 048

REACTIONS (2)
  - HOT FLUSH [None]
  - WEIGHT INCREASED [None]
